APPROVED DRUG PRODUCT: GEMFIBROZIL
Active Ingredient: GEMFIBROZIL
Strength: 600MG
Dosage Form/Route: TABLET;ORAL
Application: A074360 | Product #001
Applicant: PUREPAC PHARMACEUTICAL CO
Approved: Aug 31, 1994 | RLD: No | RS: No | Type: DISCN